FAERS Safety Report 8923872 (Version 1)
Quarter: 2012Q4

REPORT INFORMATION
  Report Type: 
  Country: CA (occurrence: US)
  Receive Date: 20121126
  Receipt Date: 20121126
  Transmission Date: 20130627
  Serious: No
  Sender: FDA-Public Use
  Company Number: CA-PFIZER INC-2012205940

PATIENT
  Sex: Female
  Weight: 62.6 kg

DRUGS (5)
  1. NORVASC [Suspect]
     Indication: BLOOD PRESSURE ABNORMAL
     Dosage: 10 mg, 1x/day
     Route: 048
     Dates: start: 200909, end: 201208
  2. NORVASC [Suspect]
     Dosage: 5 mg, 1x/day
     Route: 048
     Dates: start: 201208, end: 20120821
  3. AMLODIPINE BESILATE [Suspect]
     Dosage: 10 mg, UNK
  4. RAMIPRIL [Concomitant]
     Indication: BLOOD PRESSURE
     Dosage: 10 mg, 1x/day
     Dates: start: 200909
  5. 222 [Concomitant]
     Indication: PAIN RELIEF
     Dosage: 1 tablet
     Route: 048
     Dates: start: 200909

REACTIONS (1)
  - Gingival swelling [Recovered/Resolved]
